FAERS Safety Report 5311766-0 (Version None)
Quarter: 2007Q2

REPORT INFORMATION
  Report Type: 
  Country: None (occurrence: None)
  Receive Date: 20070430
  Receipt Date: 20060310
  Transmission Date: 20071010
  Serious: No
  Sender: FDA-Public Use
  Company Number: 2006UW04091

PATIENT
  Age: 72 Year
  Sex: Female
  Weight: 72.6 kg

DRUGS (6)
  1. NEXIUM [Suspect]
     Indication: GASTROOESOPHAGEAL REFLUX DISEASE
     Route: 048
     Dates: start: 20060309
  2. HYZAAR [Concomitant]
  3. CARDIZEM [Concomitant]
  4. EVISTA [Concomitant]
  5. COLCHICINE [Concomitant]
  6. CALCIUM CHLORIDE [Concomitant]

REACTIONS (3)
  - FEELING JITTERY [None]
  - FLATULENCE [None]
  - INSOMNIA [None]
